FAERS Safety Report 5091090-4 (Version None)
Quarter: 2006Q3

REPORT INFORMATION
  Report Type: 
  Country: None (occurrence: None)
  Receive Date: 20060726
  Receipt Date: 19940616
  Transmission Date: 20061208
  Serious: Yes (Death, Life-Threatening)
  Sender: FDA-Public Use
  Company Number: 940141

PATIENT
  Age: 69 Year
  Sex: Male
  Weight: 60.3 kg

DRUGS (21)
  1. MS CONTIN [Suspect]
     Indication: PAIN
     Dosage: 90 MG, BID, ORAL
     Route: 048
     Dates: start: 19940215
  2. PIPERACILLIN SODIUM [Concomitant]
  3. RIFAMPIN [Concomitant]
  4. VANCOMYCIN HCL [Concomitant]
  5. FERROUS SULFATE TAB [Concomitant]
  6. NYSTATIN [Concomitant]
  7. PAMELOR [Concomitant]
  8. INDOCIN [Concomitant]
  9. SENOKOT [Concomitant]
  10. KAYEXALATE [Concomitant]
  11. LASIX [Concomitant]
  12. ISORDIL [Concomitant]
  13. LISINOPRIL [Concomitant]
  14. TAGAMET [Concomitant]
  15. HEPARIN SODIUM [Concomitant]
  16. DIGOXIN [Concomitant]
  17. ANTACID TAB [Concomitant]
  18. DILAUDID [Concomitant]
  19. TORADOL [Concomitant]
  20. VISTARIL [Concomitant]
  21. MORPHINE SULFATE [Concomitant]

REACTIONS (2)
  - LETHARGY [None]
  - OVERDOSE [None]
